FAERS Safety Report 20669315 (Version 3)
Quarter: 2022Q2

REPORT INFORMATION
  Report Type: Spontaneous
  Country: FR (occurrence: FR)
  Receive Date: 20220404
  Receipt Date: 20220412
  Transmission Date: 20220720
  Serious: Yes (Life-Threatening, Other)
  Sender: FDA-Public Use
  Company Number: None

PATIENT
  Age: 56 Year
  Sex: Female
  Weight: 54 kg

DRUGS (10)
  1. FLUOXETINE HYDROCHLORIDE [Suspect]
     Active Substance: FLUOXETINE HYDROCHLORIDE
     Indication: Depression
     Dosage: 20 MG, QD
     Route: 048
     Dates: end: 20220221
  2. TICAGRELOR [Suspect]
     Active Substance: TICAGRELOR
     Indication: Stent placement
     Dosage: 2 DF, QD
     Route: 048
     Dates: start: 20220221, end: 20220222
  3. KARDEGIC [Suspect]
     Active Substance: ASPIRIN DL-LYSINE
     Indication: Stent placement
     Dosage: 1 DF, QD
     Route: 048
     Dates: start: 20220217, end: 20220221
  4. TICAGRELOR [Suspect]
     Active Substance: TICAGRELOR
     Indication: Stent placement
     Dosage: 2 DF, QD
     Route: 048
     Dates: start: 20220221, end: 20220222
  5. HEPARIN SODIUM [Suspect]
     Active Substance: HEPARIN SODIUM
     Indication: Stent placement
     Dosage: 4000 IU
     Route: 042
     Dates: start: 20220222, end: 20220222
  6. ASPIRIN DL-LYSINE [Suspect]
     Active Substance: ASPIRIN DL-LYSINE
     Indication: Stent placement
     Dosage: 4000 IU
     Route: 042
     Dates: start: 20220222, end: 20220222
  7. NEBIVOLOL [Concomitant]
     Active Substance: NEBIVOLOL
     Indication: Product used for unknown indication
     Dosage: 5 MG, QD
     Route: 065
  8. ALPRAZOLAM [Concomitant]
     Active Substance: ALPRAZOLAM
     Indication: Product used for unknown indication
     Dosage: 0.25 MG, QD
     Route: 065
  9. LEVOTHYROXINE [Concomitant]
     Active Substance: LEVOTHYROXINE
     Indication: Product used for unknown indication
     Dosage: 75 UG, QD
     Route: 065
  10. FLUOXETINE [Concomitant]
     Active Substance: FLUOXETINE HYDROCHLORIDE
     Indication: Product used for unknown indication
     Dosage: 20 MG, QD
     Route: 065

REACTIONS (1)
  - Cerebral haemorrhage [Recovering/Resolving]

NARRATIVE: CASE EVENT DATE: 20220223
